FAERS Safety Report 13253226 (Version 2)
Quarter: 2017Q2

REPORT INFORMATION
  Report Type: Spontaneous
  Country: JP (occurrence: JP)
  Receive Date: 20170220
  Receipt Date: 20170421
  Transmission Date: 20170830
  Serious: Yes (Disabling, Other)
  Sender: FDA-Public Use
  Company Number: JP-009507513-1612JPN007975

PATIENT
  Age: 68 Year
  Sex: Female

DRUGS (11)
  1. RINLAXER [Concomitant]
     Active Substance: CHLORPHENESIN CARBAMATE
     Indication: RHEUMATIC DISORDER
     Dosage: UNK
     Route: 048
  2. BIOFERMIN [Concomitant]
     Active Substance: BACILLUS SUBTILIS\LACTOBACILLUS ACIDOPHILUS\STREPTOCOCCUS FAECAIS
     Indication: RHEUMATIC DISORDER
     Dosage: UNK
     Route: 048
  3. GASLON [Concomitant]
     Active Substance: IRSOGLADINE MALEATE
     Indication: RHEUMATIC DISORDER
     Dosage: UNK
     Route: 048
  4. METHOTREXATE. [Concomitant]
     Active Substance: METHOTREXATE
     Indication: RHEUMATIC DISORDER
     Dosage: UNK
     Route: 048
  5. FERRUM [Concomitant]
     Active Substance: FERROUS FUMARATE
     Indication: RHEUMATIC DISORDER
     Dosage: UNK
     Route: 048
  6. NEXIUM [Concomitant]
     Active Substance: ESOMEPRAZOLE MAGNESIUM
     Indication: RHEUMATIC DISORDER
     Dosage: UNK
     Route: 048
  7. FOSAMAC TABLETS 35MG [Suspect]
     Active Substance: ALENDRONATE SODIUM
     Indication: OSTEOPOROSIS
     Dosage: UNK
     Route: 048
  8. PREDONINE [Concomitant]
     Active Substance: PREDNISOLONE
     Indication: RHEUMATIC DISORDER
     Dosage: UNK
     Route: 065
  9. ALENDRONATE SODIUM. [Concomitant]
     Active Substance: ALENDRONATE SODIUM
     Dosage: UNK
     Route: 048
  10. HYPEN [Concomitant]
     Active Substance: ETODOLAC
     Indication: RHEUMATIC DISORDER
     Dosage: UNK
     Route: 048
  11. ALFAROL [Concomitant]
     Active Substance: ALFACALCIDOL
     Indication: RHEUMATIC DISORDER
     Dosage: UNK
     Route: 048

REACTIONS (2)
  - Osteonecrosis of external auditory canal [Not Recovered/Not Resolved]
  - Temporomandibular joint syndrome [Not Recovered/Not Resolved]

NARRATIVE: CASE EVENT DATE: 201405
